FAERS Safety Report 15143799 (Version 1)
Quarter: 2018Q3

REPORT INFORMATION
  Report Type: Spontaneous
  Country: US (occurrence: US)
  Receive Date: 20180713
  Receipt Date: 20180713
  Transmission Date: 20181010
  Serious: Yes (Other)
  Sender: FDA-Public Use
  Company Number: US-AMGEN-USASP2010009410

PATIENT
  Age: 63 Year
  Sex: Female

DRUGS (2)
  1. PROCRIT [Suspect]
     Active Substance: ERYTHROPOIETIN
     Indication: RENAL FAILURE
     Dosage: UNK
     Dates: end: 2010
  2. EPOGEN [Suspect]
     Active Substance: ERYTHROPOIETIN
     Indication: RENAL FAILURE
     Dosage: 2000 UNIT, QWK
     Dates: start: 2010

REACTIONS (6)
  - Swollen tongue [Unknown]
  - Abdominal discomfort [Unknown]
  - Vomiting [Unknown]
  - Hypersensitivity [Unknown]
  - Lip swelling [Recovering/Resolving]
  - Diarrhoea [Unknown]

NARRATIVE: CASE EVENT DATE: 201012
